FAERS Safety Report 12614164 (Version 1)
Quarter: 2016Q3

REPORT INFORMATION
  Report Type: Spontaneous
  Country: None (occurrence: None)
  Receive Date: 20160801
  Receipt Date: 20160801
  Transmission Date: 20161109
  Serious: No
  Sender: FDA-Public Use
  Company Number: None

PATIENT
  Age: 40 Year
  Sex: Female
  Weight: 72.58 kg

DRUGS (1)
  1. SELENIUM SULFIDE. [Suspect]
     Active Substance: SELENIUM SULFIDE
     Indication: TINEA VERSICOLOUR
     Route: 061
     Dates: start: 20160721, end: 20160727

REACTIONS (3)
  - Rash pruritic [None]
  - Rash erythematous [None]
  - Erythema [None]

NARRATIVE: CASE EVENT DATE: 20160727
